FAERS Safety Report 9017180 (Version 2)
Quarter: 2013Q1

REPORT INFORMATION
  Report Type: Spontaneous
  Country: US (occurrence: US)
  Receive Date: 20130117
  Receipt Date: 20130204
  Transmission Date: 20140127
  Serious: Yes (Other)
  Sender: FDA-Public Use
  Company Number: US-BAYER-2013-004216

PATIENT
  Age: 38 Year
  Sex: Female
  Weight: 68.03 kg

DRUGS (10)
  1. YAZ [Suspect]
  2. GIANVI [Suspect]
     Indication: ACNE
     Dosage: UNK
     Route: 048
     Dates: start: 20120215, end: 20130103
  3. SPIRONOLACTONE [Concomitant]
     Indication: ACNE
     Dosage: UNK
     Route: 048
     Dates: start: 20120213, end: 20130107
  4. TRETINOIN [Concomitant]
     Indication: ACNE
     Dosage: UNK
     Route: 061
     Dates: start: 2010
  5. MULTIVITAMIN [Concomitant]
     Dosage: UNK
     Route: 048
     Dates: start: 201212
  6. OMEGA 3 [Concomitant]
     Dosage: UNK
     Route: 048
     Dates: start: 201212
  7. DICYCLOMINE [Concomitant]
     Dosage: 10 MG, UNK
     Route: 048
  8. NIZORAL [Concomitant]
     Dosage: 2 UNK, UNK
     Route: 061
  9. CLOBETASOL PROPIONATE [Concomitant]
     Indication: SKIN EXFOLIATION
     Dosage: 0.05 UNK, UNK
     Route: 061
  10. ACYCLOVIR [ACICLOVIR] [Concomitant]
     Dosage: 400 MG, ONE TABLET EVERY 12 HOURS
     Route: 048

REACTIONS (4)
  - Deep vein thrombosis [None]
  - Pain in extremity [None]
  - Gait disturbance [None]
  - Pain in extremity [None]
